FAERS Safety Report 20245705 (Version 1)
Quarter: 2021Q4

REPORT INFORMATION
  Report Type: Report from Study
  Country: CO (occurrence: CO)
  Receive Date: 20211229
  Receipt Date: 20211229
  Transmission Date: 20220303
  Serious: Yes (Other)
  Sender: FDA-Public Use
  Company Number: CO-NOVARTISPH-PHHY2019CO044437

PATIENT
  Age: 54 Year
  Sex: Female
  Weight: 54 kg

DRUGS (8)
  1. XOLAIR [Suspect]
     Active Substance: OMALIZUMAB
     Indication: Asthma
     Dosage: 300 MG, QMO
     Route: 058
     Dates: start: 20131209
  2. XOLAIR [Suspect]
     Active Substance: OMALIZUMAB
     Dosage: 300 MG, BIW (ONCE EVERY TWO WEEKS)
     Route: 058
     Dates: start: 20140121, end: 202004
  3. XOLAIR [Suspect]
     Active Substance: OMALIZUMAB
     Dosage: 600 MG, QMO
     Route: 058
  4. XOLAIR [Suspect]
     Active Substance: OMALIZUMAB
     Dosage: 300 MG, BIW (LAST APPLICATION)
     Route: 058
     Dates: start: 202109
  5. MONTELUKAST [Suspect]
     Active Substance: MONTELUKAST SODIUM
     Indication: Product used for unknown indication
     Dosage: UNK
     Route: 065
  6. ALBUTEROL [Concomitant]
     Active Substance: ALBUTEROL
     Indication: Asthma
     Dosage: 3 TO 4 PUFF/INHALER WHEN NEEDED
     Route: 065
     Dates: end: 202008
  7. ALBUTEROL [Concomitant]
     Active Substance: ALBUTEROL
     Dosage: 3 TO 4 PUFF/INHALER WHEN NEEDED
     Route: 065
     Dates: start: 20201110
  8. PREDNISOLONE [Concomitant]
     Active Substance: PREDNISOLONE
     Indication: Asthma
     Dosage: 5 MG, UNKNOWN
     Route: 048
     Dates: start: 202008

REACTIONS (12)
  - Choking [Not Recovered/Not Resolved]
  - Asphyxia [Unknown]
  - Asthmatic crisis [Unknown]
  - Influenza [Recovering/Resolving]
  - Chest discomfort [Recovering/Resolving]
  - Productive cough [Recovering/Resolving]
  - Illness [Unknown]
  - Cough [Recovering/Resolving]
  - Dyspnoea [Recovering/Resolving]
  - Weight decreased [Unknown]
  - Fatigue [Not Recovered/Not Resolved]
  - Hypertension [Unknown]

NARRATIVE: CASE EVENT DATE: 20190110
